FAERS Safety Report 6541833-5 (Version None)
Quarter: 2010Q1

REPORT INFORMATION
  Report Type: 
  Country: None (occurrence: None)
  Receive Date: 20100119
  Receipt Date: 20100112
  Transmission Date: 20100710
  Serious: Yes (Hospitalization, Other)
  Sender: FDA-Public Use
  Company Number: PHHY2009GB51084

PATIENT
  Age: 14 Year
  Sex: Female
  Weight: 33 kg

DRUGS (5)
  1. EXJADE [Suspect]
     Indication: SICKLE CELL ANAEMIA
     Dosage: 1 G, UNK
     Route: 048
     Dates: start: 20070802
  2. EXJADE [Suspect]
     Indication: IRON OVERLOAD
  3. PENICILLIN VK [Concomitant]
     Indication: SICKLE CELL ANAEMIA
  4. FOLIC ACID [Concomitant]
     Indication: SICKLE CELL ANAEMIA
  5. BLOOD TRANSFUSION, AUXILIARY PRODUCTS [Concomitant]
     Indication: CEREBROVASCULAR ACCIDENT
     Dosage: UNK, MONTHLY
     Route: 042

REACTIONS (6)
  - ALANINE AMINOTRANSFERASE INCREASED [None]
  - BLOOD BILIRUBIN INCREASED [None]
  - GASTROSTOMY TUBE INSERTION [None]
  - HEPATIC ENZYME INCREASED [None]
  - HEPATITIS [None]
  - JAUNDICE [None]
